FAERS Safety Report 7078837-2 (Version None)
Quarter: 2010Q4

REPORT INFORMATION
  Report Type: 
  Country: None (occurrence: None)
  Receive Date: 20101102
  Receipt Date: 20101021
  Transmission Date: 20110411
  Serious: Yes (Hospitalization)
  Sender: FDA-Public Use
  Company Number: US-SANOFI-AVENTIS-2010SA065153

PATIENT
  Sex: Female

DRUGS (10)
  1. ZOLPIDEM TARTRATE [Suspect]
     Route: 048
  2. GLYBURIDE [Interacting]
     Route: 048
  3. ATORVASTATIN [Interacting]
     Route: 065
  4. CLONAZEPAM [Interacting]
     Route: 065
  5. DETROL [Interacting]
     Route: 065
  6. CELEXA [Interacting]
     Route: 065
  7. SEROQUEL [Interacting]
     Route: 065
  8. SYNTHROID [Interacting]
     Route: 065
  9. OXCARBAZEPINE [Interacting]
     Route: 065
  10. ALL OTHER THERAPEUTIC PRODUCTS [Interacting]
     Route: 065

REACTIONS (2)
  - CONVULSION [None]
  - DRUG INTERACTION [None]
